FAERS Safety Report 8303948-0 (Version None)
Quarter: 2012Q2

REPORT INFORMATION
  Report Type: 
  Country: None (occurrence: None)
  Receive Date: 20120423
  Receipt Date: 20120419
  Transmission Date: 20120825
  Serious: Yes (Disabling)
  Sender: FDA-Public Use
  Company Number: PHFR2012GB002431

PATIENT
  Age: 72 Year
  Sex: Female

DRUGS (3)
  1. ZOLEDRONIC ACID [Suspect]
     Dosage: 5 MG, UNK
     Route: 042
     Dates: start: 20120322
  2. CALCIUM WITH VITAMIN D [Concomitant]
     Dosage: UNK UKN, UNK
     Route: 048
  3. OSTEOCARE [Concomitant]
     Dosage: UNK UKN, UNK
     Route: 048

REACTIONS (3)
  - BACK PAIN [None]
  - MUSCLE TIGHTNESS [None]
  - HEADACHE [None]
